FAERS Safety Report 22609901 (Version 1)
Quarter: 2023Q2

REPORT INFORMATION
  Report Type: Report from Study
  Country: DE (occurrence: DE)
  Receive Date: 20230616
  Receipt Date: 20230616
  Transmission Date: 20230721
  Serious: Yes (Life-Threatening)
  Sender: FDA-Public Use
  Company Number: DE-PFIZER INC-PV202300106497

PATIENT
  Age: 60 Year
  Sex: Female
  Weight: 76.8 kg

DRUGS (3)
  1. GEMTUZUMAB OZOGAMICIN [Suspect]
     Active Substance: GEMTUZUMAB OZOGAMICIN
     Indication: Acute myeloid leukaemia
     Dosage: 4.5 MG
     Route: 042
     Dates: start: 20230203
  2. CYTARABINE [Concomitant]
     Active Substance: CYTARABINE
     Dosage: 374 MG
     Dates: start: 20230203
  3. DAUNORUBICIN [Concomitant]
     Active Substance: DAUNORUBICIN
     Dosage: 112.2 MG
     Dates: start: 20230203

REACTIONS (1)
  - Hepatotoxicity [Recovered/Resolved]

NARRATIVE: CASE EVENT DATE: 20230218
